FAERS Safety Report 4706893-2 (Version None)
Quarter: 2005Q3

REPORT INFORMATION
  Report Type: 
  Country: None (occurrence: None)
  Receive Date: 20050701
  Receipt Date: 20050620
  Transmission Date: 20060218
  Serious: Yes (Other)
  Sender: FDA-Public Use
  Company Number: HQWYE641123JUN05

PATIENT
  Sex: Male

DRUGS (2)
  1. ALAVERT [Suspect]
     Indication: HYPERSENSITIVITY
     Dosage: ^200 MG TABLET ONCE^, TRANSPLACENTAL
     Route: 064
     Dates: start: 20050515, end: 20050515
  2. BENADRYL ALLERGY AND SINUS (DIPHENHYDRAMINE  HYDROCHLORIDE/PSEUDOEPHED [Suspect]
     Indication: DYSPNOEA
     Dosage: 1 TO 2 TABLETS 2 TO 3 TIMES PER WEEK (AS PER PHARMACIST'S RECOMMENDATION), TRANSPLACENTAL
     Route: 064
     Dates: end: 20050515

REACTIONS (4)
  - DRUG EXPOSURE DURING PREGNANCY [None]
  - JAUNDICE NEONATAL [None]
  - MECONIUM ABNORMAL [None]
  - SMALL FOR DATES BABY [None]
